FAERS Safety Report 6241753-X (Version None)
Quarter: 2009Q2

REPORT INFORMATION
  Report Type: 
  Country: None (occurrence: None)
  Receive Date: 20090623
  Receipt Date: 20090611
  Transmission Date: 20091009
  Serious: Yes (Hospitalization, Other)
  Sender: FDA-Public Use
  Company Number: US-ELI_LILLY_AND_COMPANY-US200906003437

PATIENT
  Age: 80 Year
  Sex: Male

DRUGS (5)
  1. CYMBALTA [Suspect]
     Indication: NEUROPATHY PERIPHERAL
     Dosage: 60 MG, UNK
     Dates: start: 20090526
  2. METHADONE [Concomitant]
     Dosage: 5 MG, 2/D
  3. LYRICA [Concomitant]
     Dosage: 200 MG, 2/D
  4. ULTRAM [Concomitant]
     Dosage: 200 MG, 2/D
  5. BACLOFEN [Concomitant]
     Dosage: 20 MG, EVERY 8 HRS
     Dates: start: 20090526

REACTIONS (4)
  - ALTERED STATE OF CONSCIOUSNESS [None]
  - BLOOD ARSENIC INCREASED [None]
  - OFF LABEL USE [None]
  - URINARY TRACT INFECTION [None]
